FAERS Safety Report 13154422 (Version 1)
Quarter: 2017Q1

REPORT INFORMATION
  Report Type: Spontaneous
  Country: US (occurrence: US)
  Receive Date: 20170123
  Receipt Date: 20170123
  Transmission Date: 20170428
  Serious: Yes (Other)
  Sender: FDA-Public Use
  Company Number: None

PATIENT
  Age: 52 Year
  Sex: Female
  Weight: 103.5 kg

DRUGS (4)
  1. LEVOFLOXACIN 500MG [Suspect]
     Active Substance: LEVOFLOXACIN
     Indication: SINUS DISORDER
     Dosage: ?          QUANTITY:11 TABLET(S);OTHER FREQUENCY:EVERY 24 HRS;?
     Route: 048
     Dates: start: 20161212, end: 20161222
  2. ATENOLOL. [Concomitant]
     Active Substance: ATENOLOL
  3. SYNTHROID [Concomitant]
     Active Substance: LEVOTHYROXINE SODIUM
  4. ANASTROZOLE. [Concomitant]
     Active Substance: ANASTROZOLE

REACTIONS (3)
  - Arthralgia [None]
  - Joint stiffness [None]
  - Tendon disorder [None]

NARRATIVE: CASE EVENT DATE: 20161213
